FAERS Safety Report 17230020 (Version 1)
Quarter: 2019Q4

REPORT INFORMATION
  Report Type: Spontaneous
  Country: US (occurrence: US)
  Receive Date: 20191210
  Receipt Date: 20191210
  Transmission Date: 20200122
  Serious: Yes (Hospitalization)
  Sender: FDA-Public Use
  Company Number: None

PATIENT
  Age: 71 Year
  Sex: Male
  Weight: 95.48 kg

DRUGS (1)
  1. DIVALPROEX (DIVALPROEX NA 250MG TAB, EC) [Suspect]
     Active Substance: DIVALPROEX SODIUM
     Indication: DEMENTIA
     Dates: start: 20190401, end: 20190411

REACTIONS (4)
  - Agitation [None]
  - Dementia [None]
  - Paranoia [None]
  - Anger [None]

NARRATIVE: CASE EVENT DATE: 20190410
